FAERS Safety Report 8623315-X (Version None)
Quarter: 2012Q3

REPORT INFORMATION
  Report Type: 
  Country: None (occurrence: None)
  Receive Date: 20120827
  Receipt Date: 20120823
  Transmission Date: 20120928
  Serious: Yes (Other)
  Sender: FDA-Public Use
  Company Number: PHEH2012US013684

PATIENT
  Sex: Female

DRUGS (1)
  1. RECLAST [Suspect]
     Indication: OSTEOPOROSIS
     Dosage: 5 MG, UNK
     Route: 042
     Dates: start: 20111201

REACTIONS (7)
  - SPINAL OSTEOARTHRITIS [None]
  - EXOSTOSIS [None]
  - BONE PAIN [None]
  - SPONDYLOARTHROPATHY [None]
  - INTERVERTEBRAL DISC PROTRUSION [None]
  - NECK PAIN [None]
  - INTERVERTEBRAL DISC SPACE NARROWING [None]
